FAERS Safety Report 10794788 (Version 2)
Quarter: 2015Q3

REPORT INFORMATION
  Report Type: Spontaneous
  Country: US (occurrence: US)
  Receive Date: 20150213
  Receipt Date: 20150731
  Transmission Date: 20151125
  Serious: No
  Sender: FDA-Public Use
  Company Number: US-GLAXOSMITHKLINE-US2014GSK051071

PATIENT
  Age: 52 Year
  Sex: Male

DRUGS (18)
  1. WELLBUTRIN SR [Suspect]
     Active Substance: BUPROPION HYDROCHLORIDE
     Indication: DEPRESSION
     Dosage: 200 MG, BID
     Route: 048
     Dates: start: 201112
  2. FLUTICASONE NASAL SPRAY [Suspect]
     Active Substance: FLUTICASONE\FLUTICASONE PROPIONATE
  3. MOTRIN [Suspect]
     Active Substance: IBUPROFEN
  4. ULTRAM [Suspect]
     Active Substance: TRAMADOL HYDROCHLORIDE
  5. MIRALAX [Suspect]
     Active Substance: POLYETHYLENE GLYCOL 3350
  6. MUCINEX D [Suspect]
     Active Substance: GUAIFENESIN\PSEUDOEPHEDRINE HYDROCHLORIDE
  7. ATIVAN [Suspect]
     Active Substance: LORAZEPAM
  8. ROBAXIN [Suspect]
     Active Substance: METHOCARBAMOL
  9. ALIGN [Suspect]
     Active Substance: BIFIDOBACTERIUM LONGUM SUBSP. INFANTIS
  10. INDERAL [Suspect]
     Active Substance: PROPRANOLOL HYDROCHLORIDE
  11. LISINOPRIL. [Suspect]
     Active Substance: LISINOPRIL
  12. FIORINAL [Suspect]
     Active Substance: ASPIRIN\BUTALBITAL\CAFFEINE
  13. NEXIUM [Suspect]
     Active Substance: ESOMEPRAZOLE MAGNESIUM
  14. ZOFRAN [Suspect]
     Active Substance: ONDANSETRON HYDROCHLORIDE
     Dosage: UNK
  15. WELLBUTRIN SR [Suspect]
     Active Substance: BUPROPION HYDROCHLORIDE
     Dosage: 100 MG, BID
     Dates: start: 201412
  16. AZITHROMYCIN [Suspect]
     Active Substance: AZITHROMYCIN ANHYDROUS
  17. IMODIUM [Suspect]
     Active Substance: LOPERAMIDE HYDROCHLORIDE
  18. TYLENOL [Suspect]
     Active Substance: ACETAMINOPHEN

REACTIONS (4)
  - Visual impairment [Not Recovered/Not Resolved]
  - Nausea [Unknown]
  - Diplopia [Not Recovered/Not Resolved]
  - Vision blurred [Not Recovered/Not Resolved]

NARRATIVE: CASE EVENT DATE: 201412
